FAERS Safety Report 16724040 (Version 1)
Quarter: 2019Q3

REPORT INFORMATION
  Report Type: Spontaneous
  Country: JP (occurrence: JP)
  Receive Date: 20190821
  Receipt Date: 20190821
  Transmission Date: 20191005
  Serious: Yes (Hospitalization, Other)
  Sender: FDA-Public Use
  Company Number: JP-ACCORD-151986

PATIENT
  Age: 67 Year
  Sex: Female

DRUGS (3)
  1. TACROLIMUS. [Suspect]
     Active Substance: TACROLIMUS
     Indication: STILL^S DISEASE
     Dosage: 1 MG DAILY, INCREASED TO 2 MG DAILY AND STOPPED
  2. PREDNISOLONE. [Suspect]
     Active Substance: PREDNISOLONE
     Indication: STILL^S DISEASE
     Dosage: 8 MG DAILY, INCREASED TO 60 MG (1 MG/KG)
  3. METHOTREXATE. [Suspect]
     Active Substance: METHOTREXATE
     Indication: STILL^S DISEASE
     Dosage: 10 MG WEEKLY AND STOPPED

REACTIONS (2)
  - Serum ferritin increased [Recovered/Resolved]
  - Acquired amegakaryocytic thrombocytopenia [Recovered/Resolved]
